FAERS Safety Report 19929494 (Version 2)
Quarter: 2021Q4

REPORT INFORMATION
  Report Type: Spontaneous
  Country: KR (occurrence: KR)
  Receive Date: 20211007
  Receipt Date: 20211011
  Transmission Date: 20220304
  Serious: Yes (Death)
  Sender: FDA-Public Use
  Company Number: KR-PFIZER INC-202101291708

PATIENT
  Age: 55 Year
  Sex: Female

DRUGS (2)
  1. IBRANCE [Suspect]
     Active Substance: PALBOCICLIB
     Dosage: 125 MG, 1X/DAY (DAILY FOR 14 DAYS)
     Route: 048
  2. IBRANCE [Suspect]
     Active Substance: PALBOCICLIB
     Dosage: 100 MG, 1X/DAY (DAILY FOR 14 DAYS)
     Route: 048

REACTIONS (4)
  - Sepsis [Fatal]
  - Abdominal infection [Fatal]
  - Second primary malignancy [Fatal]
  - Liposarcoma [Fatal]
